APPROVED DRUG PRODUCT: HYDROCORTISONE
Active Ingredient: HYDROCORTISONE
Strength: 1%
Dosage Form/Route: CREAM;TOPICAL
Application: A088845 | Product #001
Applicant: PHARMADERM DIV ALTANA INC
Approved: Feb 27, 1986 | RLD: No | RS: No | Type: DISCN